FAERS Safety Report 6010910-X (Version None)
Quarter: 2008Q4

REPORT INFORMATION
  Report Type: 
  Country: None (occurrence: None)
  Receive Date: 20081216
  Receipt Date: 20081203
  Transmission Date: 20090506
  Serious: Yes (Hospitalization)
  Sender: FDA-Public Use
  Company Number: 08H-163-0315326-00

PATIENT
  Age: 39 Year
  Sex: Female

DRUGS (4)
  1. PENTOTHAL [Suspect]
     Indication: DRUG USE FOR UNKNOWN INDICATION
  2. FENTANYL-100 [Concomitant]
  3. VERSED [Concomitant]
  4. ANTI NAUSEA (ANTI-NAUSEA /02089301?) [Concomitant]

REACTIONS (4)
  - HAEMATOCRIT DECREASED [None]
  - LOSS OF CONSCIOUSNESS [None]
  - MOVEMENT DISORDER [None]
  - SPEECH DISORDER [None]
